FAERS Safety Report 4764969-8 (Version None)
Quarter: 2005Q3

REPORT INFORMATION
  Report Type: 
  Country: None (occurrence: None)
  Receive Date: 20050907
  Receipt Date: 20050823
  Transmission Date: 20060218
  Serious: Yes (Hospitalization)
  Sender: FDA-Public Use
  Company Number: 8010138

PATIENT
  Age: 70 Year
  Sex: Female
  Weight: 65.9 kg

DRUGS (3)
  1. KEPPRA [Suspect]
     Indication: HAEMANGIOMA
     Dosage: 750 MG 2/D PO
     Route: 048
     Dates: start: 20031103
  2. PRAVACHOL [Concomitant]
  3. ACTONEL [Concomitant]

REACTIONS (2)
  - NEUROPATHY [None]
  - RESTLESS LEGS SYNDROME [None]
